FAERS Safety Report 21066912 (Version 2)
Quarter: 2022Q3

REPORT INFORMATION
  Report Type: Spontaneous
  Country: JP (occurrence: JP)
  Receive Date: 20220712
  Receipt Date: 20220713
  Transmission Date: 20221026
  Serious: Yes (Death)
  Sender: FDA-Public Use
  Company Number: JP-JNJFOC-20220716444

PATIENT
  Age: 3 Decade
  Sex: Male

DRUGS (3)
  1. OPSUMIT [Suspect]
     Active Substance: MACITENTAN
     Indication: Pulmonary artery atresia
     Dosage: DOSE UNKNOWN
     Route: 048
  2. WARFARIN [Suspect]
     Active Substance: WARFARIN
     Indication: Product used for unknown indication
     Route: 048
  3. WARFARIN [Suspect]
     Active Substance: WARFARIN
     Route: 048

REACTIONS (5)
  - Pulmonary haemorrhage [Fatal]
  - Cardiac failure [Fatal]
  - Pneumonia staphylococcal [Fatal]
  - Bronchitis [Fatal]
  - Sinusitis [Fatal]
